FAERS Safety Report 8194683-0 (Version None)
Quarter: 2012Q1

REPORT INFORMATION
  Report Type: 
  Country: None (occurrence: None)
  Receive Date: 20120308
  Receipt Date: 20110124
  Transmission Date: 20120608
  Serious: No
  Sender: FDA-Public Use
  Company Number: US-GLAXOSMITHKLINE-A0908528A

PATIENT
  Age: 71 Year
  Sex: Female

DRUGS (2)
  1. NICOTINE POLACRILEX [Suspect]
     Indication: EX-TOBACCO USER
     Dates: start: 20110118, end: 20110124
  2. NICOTINE [Suspect]
     Indication: EX-TOBACCO USER
     Dates: start: 20110116, end: 20110118

REACTIONS (8)
  - ANXIETY [None]
  - FEELING ABNORMAL [None]
  - SENSORY DISTURBANCE [None]
  - PSYCHOMOTOR HYPERACTIVITY [None]
  - SENSORY LOSS [None]
  - PANIC ATTACK [None]
  - NERVOUSNESS [None]
  - BLOOD PRESSURE INCREASED [None]
